FAERS Safety Report 5032871-2 (Version None)
Quarter: 2006Q2

REPORT INFORMATION
  Report Type: 
  Country: None (occurrence: None)
  Receive Date: 20060622
  Receipt Date: 20060616
  Transmission Date: 20061013
  Serious: Yes (Other)
  Sender: FDA-Public Use
  Company Number: GB-GLAXOSMITHKLINE-B0427848A

PATIENT

DRUGS (1)
  1. ZOFRAN [Suspect]
     Route: 065

REACTIONS (2)
  - EXTRAPYRAMIDAL DISORDER [None]
  - HOT FLUSH [None]
